FAERS Safety Report 7013176-7 (Version None)
Quarter: 2010Q3

REPORT INFORMATION
  Report Type: 
  Country: None (occurrence: None)
  Receive Date: 20100924
  Receipt Date: 20100922
  Transmission Date: 20110219
  Serious: Yes (Hospitalization, Other)
  Sender: FDA-Public Use
  Company Number: IT-SANOFI-AVENTIS-2010SA056981

PATIENT
  Sex: Male

DRUGS (2)
  1. OXALIPLATIN [Suspect]
     Route: 041
  2. FLUOROURACIL [Concomitant]

REACTIONS (1)
  - RENAL TUBULAR ACIDOSIS [None]
